FAERS Safety Report 8992678 (Version 1)
Quarter: 2013Q1

REPORT INFORMATION
  Report Type: Spontaneous
  Country: GB (occurrence: GB)
  Receive Date: 20130101
  Receipt Date: 20130101
  Transmission Date: 20140127
  Serious: Yes (Other)
  Sender: FDA-Public Use
  Company Number: GB-BRISTOL-MYERS SQUIBB COMPANY-17233099

PATIENT
  Sex: Female

DRUGS (3)
  1. IRBESARTAN TABS [Suspect]
     Indication: HYPERTENSION
     Dosage: UNK-4OCT12?5OCT12-21NOV12
     Dates: start: 20121122, end: 20121128
  2. APROVEL [Suspect]
     Indication: HYPERTENSION
     Route: 048
     Dates: start: 20121005, end: 20121121
  3. AMLODIPINE [Concomitant]
     Dates: start: 20121126

REACTIONS (5)
  - Headache [Recovering/Resolving]
  - Vision blurred [Recovering/Resolving]
  - Balance disorder [Recovering/Resolving]
  - Blood pressure increased [Recovering/Resolving]
  - Product substitution issue [Recovering/Resolving]
